FAERS Safety Report 6399701-8 (Version None)
Quarter: 2009Q4

REPORT INFORMATION
  Report Type: 
  Country: None (occurrence: None)
  Receive Date: 20091014
  Receipt Date: 20091007
  Transmission Date: 20100525
  Serious: Yes (Death)
  Sender: FDA-Public Use
  Company Number: CZ-ROCHE-661094

PATIENT
  Sex: Male

DRUGS (3)
  1. CAPECITABINE [Suspect]
     Route: 065
     Dates: start: 20090824
  2. BEVACIZUMAB [Suspect]
     Dosage: SINGLE DOSE: 650 MG
     Route: 042
     Dates: start: 20090824
  3. OXALIPLATIN [Suspect]
     Route: 065
     Dates: start: 20090824

REACTIONS (1)
  - PULMONARY EMBOLISM [None]
